FAERS Safety Report 7746423-4 (Version None)
Quarter: 2011Q3

REPORT INFORMATION
  Report Type: 
  Country: None (occurrence: None)
  Receive Date: 20110912
  Receipt Date: 20110912
  Transmission Date: 20111222
  Serious: No
  Sender: FDA-Public Use
  Company Number: None

PATIENT
  Age: 81 Year
  Sex: Female
  Weight: 65.7716 kg

DRUGS (4)
  1. BENICAR [Concomitant]
  2. FENTANYL [Suspect]
     Indication: SEDATIVE THERAPY
     Dosage: 100MG X1 IV
     Route: 042
     Dates: start: 20110404
  3. ASPIRIN [Concomitant]
  4. PROPOFOL [Suspect]
     Dosage: 70MG X1 IV
     Route: 042
     Dates: start: 20110404

REACTIONS (5)
  - HYPOPNOEA [None]
  - AREFLEXIA [None]
  - UNRESPONSIVE TO STIMULI [None]
  - BLOOD PRESSURE DIASTOLIC DECREASED [None]
  - RESPIRATORY RATE DECREASED [None]
